FAERS Safety Report 12727832 (Version 2)
Quarter: 2017Q1

REPORT INFORMATION
  Report Type: Spontaneous
  Country: IT (occurrence: IT)
  Receive Date: 20160909
  Receipt Date: 20170131
  Transmission Date: 20170428
  Serious: Yes (Life-Threatening)
  Sender: FDA-Public Use
  Company Number: IT-TEVA-689556ACC

PATIENT
  Age: 34 Year
  Sex: Female

DRUGS (3)
  1. LITHIUM CARBONATE. [Suspect]
     Active Substance: LITHIUM CARBONATE
     Indication: INTENTIONAL SELF-INJURY
     Dosage: 7.5 G TOTAL
     Route: 048
     Dates: start: 20151109, end: 20151109
  2. ABILIFY [Suspect]
     Active Substance: ARIPIPRAZOLE
     Indication: INTENTIONAL SELF-INJURY
     Dosage: 15 MG TOTAL
     Route: 048
     Dates: start: 20151109, end: 20151109
  3. LYRICA [Suspect]
     Active Substance: PREGABALIN
     Indication: INTENTIONAL SELF-INJURY
     Dosage: 3.15 G TOTAL
     Route: 048
     Dates: start: 20151109, end: 20151109

REACTIONS (2)
  - Drug abuse [Unknown]
  - Lethargy [Unknown]

NARRATIVE: CASE EVENT DATE: 20151109
